FAERS Safety Report 5480716-9 (Version None)
Quarter: 2007Q4

REPORT INFORMATION
  Report Type: 
  Country: None (occurrence: None)
  Receive Date: 20071009
  Receipt Date: 20070928
  Transmission Date: 20080405
  Serious: Yes (Hospitalization)
  Sender: FDA-Public Use
  Company Number: GB-SANOFI-SYNTHELABO-A01200709485

PATIENT
  Age: 38 Year
  Sex: Male

DRUGS (6)
  1. LANSOPRAZOLE [Suspect]
     Indication: SYSTEMIC SCLEROSIS
     Dosage: UNK
     Route: 065
  2. FLUOXETINE [Suspect]
     Indication: SYSTEMIC SCLEROSIS
     Dosage: UNK
     Route: 065
  3. CLOPIDOGREL BISULFATE [Suspect]
     Indication: SYSTEMIC SCLEROSIS
     Dosage: UNK
     Route: 048
  4. LOSARTAN POTASSIUM [Concomitant]
     Indication: SYSTEMIC SCLEROSIS
     Dosage: UNK
     Route: 065
  5. ILOPROST [Concomitant]
     Indication: SYSTEMIC SCLEROSIS
     Dosage: UNK
     Route: 065
  6. NIFEDIPINE [Suspect]
     Indication: SYSTEMIC SCLEROSIS
     Dosage: UNK
     Route: 065

REACTIONS (5)
  - ANAEMIA [None]
  - CONDITION AGGRAVATED [None]
  - DRUG INEFFECTIVE [None]
  - GANGRENE [None]
  - SYSTEMIC SCLEROSIS [None]
